FAERS Safety Report 21046259 (Version 2)
Quarter: 2022Q4

REPORT INFORMATION
  Report Type: Spontaneous
  Country: FR (occurrence: FR)
  Receive Date: 20220706
  Receipt Date: 20221003
  Transmission Date: 20230113
  Serious: Yes (Hospitalization, Disabling, Other)
  Sender: FDA-Public Use
  Company Number: FR-002147023-NVSC2022FR123749

PATIENT
  Age: 83 Year
  Sex: Male

DRUGS (9)
  1. LUCENTIS [Suspect]
     Active Substance: RANIBIZUMAB
     Indication: Age-related macular degeneration
     Dosage: UNK
     Route: 050
     Dates: start: 20211025
  2. LUCENTIS [Suspect]
     Active Substance: RANIBIZUMAB
     Indication: Myopic chorioretinal degeneration
     Dosage: UNK
     Route: 050
     Dates: start: 20211222
  3. LUCENTIS [Suspect]
     Active Substance: RANIBIZUMAB
     Dosage: UNK
     Route: 050
     Dates: start: 20211122
  4. BETADINE (FRANCE) [Concomitant]
     Indication: Product used for unknown indication
     Dosage: 1 DROP
     Dates: start: 20211025
  5. BETADINE (FRANCE) [Concomitant]
     Dosage: 1 DROP
     Dates: start: 20211122
  6. BETADINE (FRANCE) [Concomitant]
     Dosage: 1 DROP
     Dates: start: 20211222
  7. DEXAMETHASONE SODIUM PHOSPHATE\NEOMYCIN SULFATE [Concomitant]
     Active Substance: DEXAMETHASONE SODIUM PHOSPHATE\NEOMYCIN SULFATE
     Indication: Product used for unknown indication
     Dosage: 1 DROP 3 TIMES/DAY FOR 5 DAYS
     Dates: start: 20211025
  8. DEXAMETHASONE SODIUM PHOSPHATE\NEOMYCIN SULFATE [Concomitant]
     Active Substance: DEXAMETHASONE SODIUM PHOSPHATE\NEOMYCIN SULFATE
     Dosage: 1 DROP 3 TIMES/DAY FOR 5 DAYS
     Dates: start: 20211122
  9. DEXAMETHASONE SODIUM PHOSPHATE\NEOMYCIN SULFATE [Concomitant]
     Active Substance: DEXAMETHASONE SODIUM PHOSPHATE\NEOMYCIN SULFATE
     Dosage: 1 DROP 3 TIMES/DAY FOR 5 DAYS
     Dates: start: 20211222

REACTIONS (9)
  - Ischaemic stroke [Unknown]
  - Sensory loss [Unknown]
  - Limb discomfort [Unknown]
  - Hemiparesis [Unknown]
  - Atrial fibrillation [Unknown]
  - Blood pressure increased [Unknown]
  - Asthenia [Unknown]
  - Weight decreased [Unknown]
  - COVID-19 [Unknown]

NARRATIVE: CASE EVENT DATE: 20211224
